FAERS Safety Report 25259662 (Version 2)
Quarter: 2025Q3

REPORT INFORMATION
  Report Type: Report from Study
  Country: US (occurrence: US)
  Receive Date: 20250501
  Receipt Date: 20250910
  Transmission Date: 20251021
  Serious: Yes (Hospitalization, Other)
  Sender: STEMLINE THERAPEUTICS
  Company Number: US-STEMLINE THERAPEUTICS B.V.-2024-STML-US000165

PATIENT

DRUGS (1)
  1. ORSERDU [Suspect]
     Active Substance: ELACESTRANT
     Indication: Breast cancer female
     Dosage: 345 MG, DAILY
     Route: 048
     Dates: start: 20240806, end: 20250815

REACTIONS (8)
  - Ketoacidosis [Unknown]
  - Pain [Unknown]
  - Eating disorder [Recovering/Resolving]
  - Weight decreased [Recovering/Resolving]
  - Drug intolerance [Recovering/Resolving]
  - Fatigue [Recovering/Resolving]
  - Headache [Recovering/Resolving]
  - Vomiting [Recovering/Resolving]

NARRATIVE: CASE EVENT DATE: 20240809
